FAERS Safety Report 10889844 (Version 1)
Quarter: 2015Q1

REPORT INFORMATION
  Report Type: Spontaneous
  Country: TR (occurrence: TR)
  Receive Date: 20150305
  Receipt Date: 20150305
  Transmission Date: 20150721
  Serious: Yes (Hospitalization)
  Sender: FDA-Public Use
  Company Number: TR-NOVOPROD-440433

PATIENT
  Sex: Male
  Weight: 3.6 kg

DRUGS (2)
  1. NOVORAPID [Suspect]
     Active Substance: INSULIN ASPART
     Indication: GESTATIONAL DIABETES
     Dosage: 22 U, QD
     Route: 064
     Dates: start: 20140929, end: 201411
  2. EUTHYROX [Concomitant]
     Active Substance: LEVOTHYROXINE SODIUM
     Indication: THYROID HORMONE REPLACEMENT THERAPY
     Dosage: 1X1
     Route: 064
     Dates: start: 201410, end: 20141212

REACTIONS (6)
  - Immature respiratory system [Recovered/Resolved]
  - Jaundice neonatal [Recovered/Resolved]
  - Premature baby [Unknown]
  - Neonatal respiratory distress syndrome [Recovered/Resolved]
  - Foetal exposure during pregnancy [Recovered/Resolved]
  - Neonatal infection [Recovered/Resolved]

NARRATIVE: CASE EVENT DATE: 20140929
